FAERS Safety Report 19710915 (Version 3)
Quarter: 2021Q3

REPORT INFORMATION
  Report Type: Report from Study
  Country: CN (occurrence: CN)
  Receive Date: 20210817
  Receipt Date: 20210922
  Transmission Date: 20211014
  Serious: Yes (Hospitalization, Other)
  Sender: FDA-Public Use
  Company Number: CN-TAKEDA-2021TUS050534

PATIENT
  Age: 66 Year
  Sex: Male
  Weight: 60 kg

DRUGS (15)
  1. TAZOBACTAM SODIUM AND PIPERACILLIN SODIUM [Concomitant]
     Active Substance: PIPERACILLIN SODIUM\TAZOBACTAM SODIUM
     Indication: INFECTION PROPHYLAXIS
     Dosage: 4.5 MILLIGRAM
     Route: 042
     Dates: start: 20210704, end: 20210722
  2. ENTERAL NUTRITIONAL POWDER(TP) [Concomitant]
     Indication: NUTRITIONAL SUPPLEMENTATION
     Dosage: 20 GRAM
     Route: 048
     Dates: start: 20210701
  3. POTASSIUM CHLORIDE. [Concomitant]
     Active Substance: POTASSIUM CHLORIDE
     Indication: SUPPLEMENTATION THERAPY
     Dosage: 1 GRAM
     Route: 048
     Dates: start: 20210702
  4. MOXIFLOXACIN HYDROCHLORIDE AND SODIUM CHLORIDE [Concomitant]
     Active Substance: MOXIFLOXACIN HYDROCHLORIDE
     Indication: INFECTION PROPHYLAXIS
     Dosage: 0.4 GRAM, QD
     Route: 042
     Dates: start: 20210520, end: 20210605
  5. OXYCODONE AND ACETAMINOPHEN [Concomitant]
     Active Substance: ACETAMINOPHEN\OXYCODONE HYDROCHLORIDE
     Indication: NEUROPATHY PERIPHERAL
     Dosage: 5 MILLIGRAM
     Route: 048
     Dates: start: 20210614
  6. PALONOSETRON HYDROCHLORIDE. [Concomitant]
     Active Substance: PALONOSETRON HYDROCHLORIDE
     Indication: ANTIEMETIC SUPPORTIVE CARE
     Dosage: 0.25 MILLIGRAM, QD
     Route: 042
     Dates: start: 20210616, end: 20210616
  7. CASPOFUNGIN ACETATE. [Concomitant]
     Active Substance: CASPOFUNGIN ACETATE
     Indication: INFECTION PROPHYLAXIS
     Dosage: 50 MILLIGRAM, QD
     Route: 042
     Dates: start: 20210528, end: 20210621
  8. GANCICLOVIR. [Concomitant]
     Active Substance: GANCICLOVIR
     Indication: INFECTION PROPHYLAXIS
     Dosage: 0.25 GRAM
     Route: 042
     Dates: start: 20210713, end: 20210716
  9. RECOMBINANT HUMAN ERYTHROPOIETIN [Concomitant]
     Active Substance: ERYTHROPOIETIN
     Indication: PROPHYLAXIS
     Dosage: UNK UNK, QD
     Route: 042
     Dates: start: 20210601, end: 20210630
  10. COMPOUND GLYCYRRHIZIN [Concomitant]
     Indication: LIVER DISORDER
     Dosage: 160 MILLIGRAM, QD
     Route: 042
     Dates: start: 20210601, end: 20210630
  11. OMEPRAZOLE SODIUM [Concomitant]
     Active Substance: OMEPRAZOLE SODIUM
     Indication: PROPHYLAXIS
     Dosage: 40 MILLIGRAM, 1/WEEK
     Route: 042
     Dates: start: 20210616, end: 20210630
  12. MECOBALAMIN [Concomitant]
     Active Substance: METHYLCOBALAMIN
     Indication: NEUROPATHY PERIPHERAL
     Dosage: 500 MICROGRAM, 1/WEEK
     Route: 042
     Dates: start: 20210701, end: 20210724
  13. FENTANYL. [Concomitant]
     Active Substance: FENTANYL
     Indication: NEUROPATHY PERIPHERAL
     Dosage: 4.12 MILLIGRAM
     Route: 062
     Dates: start: 20210614
  14. IXAZOMIB [Suspect]
     Active Substance: IXAZOMIB
     Indication: PLASMA CELL MYELOMA
     Dosage: 4 MILLIGRAM, QD
     Route: 048
     Dates: start: 20210519
  15. ILAPRAZOLE [Concomitant]
     Active Substance: ILAPRAZOLE
     Indication: PROPHYLAXIS
     Dosage: 10 MILLIGRAM
     Route: 048
     Dates: start: 20210701

REACTIONS (15)
  - Upper respiratory tract infection [Not Recovered/Not Resolved]
  - Neutrophil count decreased [Recovering/Resolving]
  - Hypokalaemia [Not Recovered/Not Resolved]
  - C-reactive protein increased [Recovering/Resolving]
  - Decreased appetite [Not Recovered/Not Resolved]
  - Blood creatinine increased [Not Recovered/Not Resolved]
  - Vomiting [Recovering/Resolving]
  - Hypoproteinaemia [Recovering/Resolving]
  - White blood cell count decreased [Not Recovered/Not Resolved]
  - Hypercalcaemia [Recovering/Resolving]
  - Anaemia [Not Recovered/Not Resolved]
  - Abdominal pain [Recovering/Resolving]
  - Oedema peripheral [Not Recovered/Not Resolved]
  - Lymphocyte count decreased [Recovering/Resolving]
  - Constipation [Recovering/Resolving]

NARRATIVE: CASE EVENT DATE: 20210520
